FAERS Safety Report 13469330 (Version 1)
Quarter: 2017Q2

REPORT INFORMATION
  Report Type: Spontaneous
  Country: US (occurrence: US)
  Receive Date: 20170421
  Receipt Date: 20170421
  Transmission Date: 20170830
  Serious: Yes (Life-Threatening, Hospitalization, Other)
  Sender: FDA-Public Use
  Company Number: US-TARO-2017TAR00271

PATIENT
  Sex: Male

DRUGS (1)
  1. AMIODARONE HCL TABLET 200 MG [Suspect]
     Active Substance: AMIODARONE HYDROCHLORIDE
     Indication: ATRIAL FIBRILLATION
     Dosage: UNK
     Route: 048
     Dates: start: 201601, end: 201604

REACTIONS (15)
  - Pulmonary fibrosis [Not Recovered/Not Resolved]
  - Pneumonia [Unknown]
  - Heart rate irregular [Unknown]
  - Respiratory failure [Unknown]
  - Interstitial lung disease [Unknown]
  - Off label use [Unknown]
  - Anaemia [Unknown]
  - Fatigue [Unknown]
  - Cardiac failure congestive [Unknown]
  - Confusional state [Unknown]
  - Tremor [Unknown]
  - Infection [Unknown]
  - Anxiety [Unknown]
  - Atrial fibrillation [Unknown]
  - Weight decreased [Unknown]

NARRATIVE: CASE EVENT DATE: 2016
